FAERS Safety Report 19198008 (Version 1)
Quarter: 2021Q2

REPORT INFORMATION
  Report Type: Other
  Country: GB (occurrence: GB)
  Receive Date: 20210430
  Receipt Date: 20210430
  Transmission Date: 20210717
  Serious: Yes (Other)
  Sender: FDA-Public Use
  Company Number: GB-MACLEODS PHARMA UK LTD-MAC2021030972

PATIENT

DRUGS (11)
  1. BRIMONIDINE [Concomitant]
     Active Substance: BRIMONIDINE TARTRATE
     Indication: PRODUCT USED FOR UNKNOWN INDICATION
     Dosage: 2 DOSAGE FORM, QD, BOTH EYES. 2MG/ML
     Route: 065
     Dates: start: 20210128
  2. MEDIDERM [Concomitant]
     Indication: PRODUCT USED FOR UNKNOWN INDICATION
     Dosage: UNK, AS DIRECTED
     Route: 065
     Dates: start: 20210302
  3. MEMANTINE TABLET [Suspect]
     Active Substance: MEMANTINE
     Dosage: 10 MILLIGRAM
     Route: 048
  4. MEMANTINE TABLET [Suspect]
     Active Substance: MEMANTINE
     Indication: MUSCULAR WEAKNESS
     Dosage: 5 MILLIGRAM
     Route: 065
  5. ASPIRIN. [Concomitant]
     Active Substance: ASPIRIN
     Indication: PRODUCT USED FOR UNKNOWN INDICATION
     Dosage: 75 MILLIGRAM, QD, WITH FOOD
     Route: 065
     Dates: start: 20210128
  6. ATORVASTATIN [Concomitant]
     Active Substance: ATORVASTATIN
     Indication: PRODUCT USED FOR UNKNOWN INDICATION
     Dosage: 10 MILLIGRAM, QD, NOTES FOR PATIENT: PLEASE BOOK APPOINTMENT FOR A CHOLESTEROL BLOOD TEST AND BLO
     Route: 065
     Dates: start: 20210121
  7. TIMOLOL. [Concomitant]
     Active Substance: TIMOLOL
     Indication: PRODUCT USED FOR UNKNOWN INDICATION
     Dosage: 2 DOSAGE FORM, QD, BOTH EYES. 5MG/ML
     Route: 065
     Dates: start: 20210128
  8. FINASTERIDE. [Concomitant]
     Active Substance: FINASTERIDE
     Indication: PRODUCT USED FOR UNKNOWN INDICATION
     Dosage: 5 MILLIGRAM, QD
     Route: 065
     Dates: start: 20210128
  9. TAMSULOSIN [Concomitant]
     Active Substance: TAMSULOSIN
     Indication: PRODUCT USED FOR UNKNOWN INDICATION
     Dosage: 400 MICROGRAM, QD
     Route: 065
     Dates: start: 20210128
  10. MELATONIN [Concomitant]
     Active Substance: MELATONIN
     Indication: PRODUCT USED FOR UNKNOWN INDICATION
     Dosage: 2 MILLIGRAM, QD, TO BE TAKEN AT NIGHT NOTES FOR PATIENT
     Route: 065
     Dates: start: 20210122
  11. BIMATOPROST. [Concomitant]
     Active Substance: BIMATOPROST
     Indication: PRODUCT USED FOR UNKNOWN INDICATION
     Dosage: 1 GTT, QD, DROP INTO AFFECTED EYE(S) ONCE IN THE EVENING. 100MICROGRAMS/ML
     Route: 065
     Dates: start: 20210128

REACTIONS (1)
  - Depressive symptom [Not Recovered/Not Resolved]

NARRATIVE: CASE EVENT DATE: 20210409
